FAERS Safety Report 8933327 (Version 1)
Quarter: 2012Q4

REPORT INFORMATION
  Report Type: 
  Country: FI (occurrence: FI)
  Receive Date: 20121129
  Receipt Date: 20121129
  Transmission Date: 20130627
  Serious: Yes (Life-Threatening)
  Sender: FDA-Public Use
  Company Number: FI-009507513-1211FIN010029

PATIENT
  Age: 76 Year
  Sex: Female

DRUGS (9)
  1. ESMERON [Suspect]
     Indication: ENDOTRACHEAL INTUBATION
     Dosage: total daily dose: 50mg
     Route: 042
     Dates: start: 20121115, end: 20121115
  2. PROPOFOL [Concomitant]
     Indication: ENDOTRACHEAL INTUBATION
     Dosage: total daily dose: 100mg
     Route: 042
     Dates: start: 20121115, end: 20121115
  3. RAPIFEN [Concomitant]
     Indication: ANALGESIC THERAPY
     Dosage: total daily dose: 0.5mg
     Route: 042
     Dates: start: 20121115, end: 20121115
  4. ACTRAPID [Concomitant]
     Indication: BLOOD GLUCOSE ABNORMAL
     Dosage: total daily dose: 25-35 IU
     Route: 042
     Dates: start: 20121112
  5. CEFUROXIME [Concomitant]
     Indication: PROPHYLAXIS URINARY TRACT INFECTION
     Dosage: total daily dose: 4.5g
     Route: 042
     Dates: start: 20121112
  6. PRIMASPAN [Concomitant]
     Indication: PROPHYLAXIS
     Dosage: total daily dose: 100mg
     Route: 048
  7. NEURAMIN [Concomitant]
     Indication: NERVE ROOT LESION
     Dosage: total daily dose:100mg
     Route: 042
     Dates: start: 20121112
  8. TAFLOTAN [Concomitant]
     Indication: GLAUCOMA
     Dosage: total daily dose: 15mg
     Route: 047
  9. AZOPT [Concomitant]
     Indication: GLAUCOMA
     Dosage: total daily dose: 15mg
     Route: 047

REACTIONS (1)
  - Circulatory collapse [Not Recovered/Not Resolved]
